FAERS Safety Report 13753569 (Version 2)
Quarter: 2019Q3

REPORT INFORMATION
  Report Type: Spontaneous
  Country: US (occurrence: US)
  Receive Date: 20170713
  Receipt Date: 20190726
  Transmission Date: 20191004
  Serious: Yes (Death, Hospitalization)
  Sender: FDA-Public Use
  Company Number: US-VIFOR (INTERNATIONAL) INC.-VIT-2017-07409

PATIENT
  Age: 84 Year
  Sex: Female

DRUGS (16)
  1. AVAPRO [Concomitant]
     Active Substance: IRBESARTAN
  2. DEMADEX [Concomitant]
     Active Substance: TORSEMIDE
  3. LIDODERM [Concomitant]
     Active Substance: LIDOCAINE
  4. PROCRIT [Concomitant]
     Active Substance: ERYTHROPOIETIN
  5. TRAMADOL HYDROCHLORIDE. [Concomitant]
     Active Substance: TRAMADOL HYDROCHLORIDE
     Indication: TRANSFUSION
     Dosage: 12 IRONS
     Route: 041
  6. FOLIC ACID. [Concomitant]
     Active Substance: FOLIC ACID
  7. PLAVIX [Concomitant]
     Active Substance: CLOPIDOGREL BISULFATE
  8. COLCRYS [Concomitant]
     Active Substance: COLCHICINE
  9. AMLODIPINE BESILATE [Concomitant]
     Active Substance: AMLODIPINE BESYLATE
  10. TRAMADOL HYDROCHLORIDE. [Concomitant]
     Active Substance: TRAMADOL HYDROCHLORIDE
  11. COREG [Concomitant]
     Active Substance: CARVEDILOL
  12. FEOSOL BIFERA [Concomitant]
  13. NEXIUM [Concomitant]
     Active Substance: ESOMEPRAZOLE MAGNESIUM
  14. ULORIC [Concomitant]
     Active Substance: FEBUXOSTAT
  15. VELTASSA [Suspect]
     Active Substance: PATIROMER
     Indication: HYPERKALAEMIA
     Route: 048
     Dates: start: 20160513
  16. METANX [Concomitant]
     Active Substance: LEVOMEFOLATE CALCIUM\METHYLCOBALAMIN\PYRIDOXAL PHOSPHATE ANHYDROUS

REACTIONS (2)
  - Transfusion [Not Recovered/Not Resolved]
  - Death [Fatal]

NARRATIVE: CASE EVENT DATE: 201702
